FAERS Safety Report 9653374 (Version 1)
Quarter: 2013Q4

REPORT INFORMATION
  Report Type: Spontaneous
  Country: FR (occurrence: FR)
  Receive Date: 20131029
  Receipt Date: 20131029
  Transmission Date: 20140711
  Serious: Yes (Other)
  Sender: FDA-Public Use
  Company Number: FR-ROCHE-1293262

PATIENT
  Age: 87 Year
  Sex: Male

DRUGS (1)
  1. ROCEPHINE [Suspect]
     Indication: BRONCHITIS
     Dosage: 1 G
     Route: 058
     Dates: start: 20130905

REACTIONS (3)
  - Cholestasis [Recovering/Resolving]
  - Hepatocellular injury [Recovering/Resolving]
  - Cholecystitis [Unknown]
